FAERS Safety Report 13094210 (Version 1)
Quarter: 2017Q1

REPORT INFORMATION
  Report Type: Spontaneous
  Country: FR (occurrence: FR)
  Receive Date: 20170106
  Receipt Date: 20170106
  Transmission Date: 20170428
  Serious: Yes (Hospitalization)
  Sender: FDA-Public Use
  Company Number: FR-GE HEALTHCARE MEDICAL DIAGNOSTICS-VISP-PR-1701S-0010

PATIENT
  Age: 80 Year
  Sex: Female

DRUGS (21)
  1. TIORFAN [Suspect]
     Active Substance: RACECADOTRIL
     Indication: DIARRHOEA
     Route: 048
     Dates: start: 20150126, end: 20150128
  2. PERFALGAN [Concomitant]
     Active Substance: ACETAMINOPHEN
     Route: 042
  3. ARIXTRA [Suspect]
     Active Substance: FONDAPARINUX SODIUM
     Indication: STENT PLACEMENT
     Route: 058
     Dates: start: 20150121, end: 20150126
  4. RISORDAN [Concomitant]
     Active Substance: ISOSORBIDE DINITRATE
     Indication: STENT PLACEMENT
     Route: 042
     Dates: start: 20150121
  5. MORPHINE [Concomitant]
     Active Substance: MORPHINE
     Indication: STENT PLACEMENT
     Route: 042
     Dates: start: 20150121
  6. PLAVIX [Concomitant]
     Active Substance: CLOPIDOGREL BISULFATE
  7. VISIPAQUE [Suspect]
     Active Substance: IODIXANOL
     Indication: DIAGNOSTIC PROCEDURE
  8. PANTOPRAZOLE [Concomitant]
     Active Substance: PANTOPRAZOLE SODIUM
     Dates: end: 20150120
  9. PANTOPRAZOLE [Concomitant]
     Active Substance: PANTOPRAZOLE SODIUM
     Dates: start: 20150123
  10. PREDNISOLONE. [Concomitant]
     Active Substance: PREDNISOLONE
     Dates: start: 20150114, end: 20150121
  11. ATORVASTATINE [Concomitant]
     Active Substance: ATORVASTATIN
  12. DIFFU K [Concomitant]
     Active Substance: POTASSIUM CHLORIDE
  13. BISOPROLOL [Concomitant]
     Active Substance: BISOPROLOL
     Dates: start: 20150127
  14. METALYSE [Concomitant]
     Active Substance: TENECTEPLASE
     Indication: STENT PLACEMENT
     Route: 042
     Dates: start: 20150121
  15. VISIPAQUE [Suspect]
     Active Substance: IODIXANOL
     Indication: MYOCARDIAL INFARCTION
     Dosage: DOSE NOT REPORTED
     Route: 042
     Dates: start: 20150121, end: 20150121
  16. KARDEGIC [Concomitant]
     Active Substance: ASPIRIN LYSINE
  17. CLOPIDOGREL [Concomitant]
     Active Substance: CLOPIDOGREL BISULFATE
  18. PARACETAMOL [Concomitant]
     Active Substance: ACETAMINOPHEN
     Dates: start: 20160126
  19. LIDOCAINE. [Concomitant]
     Active Substance: LIDOCAINE
     Route: 058
  20. LOVENOX [Concomitant]
     Active Substance: ENOXAPARIN SODIUM
     Indication: STENT PLACEMENT
     Dates: start: 20150521
  21. ASPEGIC [Concomitant]
     Active Substance: ASPIRIN DL-LYSINE

REACTIONS (1)
  - Acute generalised exanthematous pustulosis [Recovered/Resolved]

NARRATIVE: CASE EVENT DATE: 20150128
